FAERS Safety Report 24564971 (Version 1)
Quarter: 2024Q4

REPORT INFORMATION
  Report Type: Spontaneous
  Country: US (occurrence: US)
  Receive Date: 20241030
  Receipt Date: 20241030
  Transmission Date: 20250114
  Serious: No
  Sender: ROCHE
  Company Number: US-ROCHE-10000119176

PATIENT
  Age: 27 Year
  Sex: Male

DRUGS (3)
  1. RITUXAN [Suspect]
     Active Substance: RITUXIMAB
     Indication: Product used for unknown indication
     Dosage: R - EPOCH (1 CYCLE)
     Route: 065
  2. RITUXAN [Suspect]
     Active Substance: RITUXIMAB
     Dosage: 2 CYCLES OF R - IVAC
     Route: 065
  3. RITUXAN [Suspect]
     Active Substance: RITUXIMAB
     Dosage: 1 CYCLE OF R - CODOX - M
     Route: 065

REACTIONS (3)
  - Drug ineffective [Unknown]
  - Abdominal pain [Unknown]
  - Fatigue [Unknown]
